FAERS Safety Report 10250242 (Version 2)
Quarter: 2014Q2

REPORT INFORMATION
  Report Type: Spontaneous
  Country: US (occurrence: US)
  Receive Date: 20140620
  Receipt Date: 20140620
  Transmission Date: 20141212
  Serious: Yes (Hospitalization, Other)
  Sender: FDA-Public Use
  Company Number: US-ABBVIE-13P-163-1086460-00

PATIENT
  Sex: Male
  Weight: 131.66 kg

DRUGS (1)
  1. ANDROGEL [Suspect]
     Indication: BLOOD TESTOSTERONE DECREASED
     Dosage: PACKETS
     Route: 061
     Dates: start: 2000, end: 2010

REACTIONS (15)
  - Vascular injury [Recovered/Resolved]
  - Pulmonary embolism [Recovered/Resolved]
  - Physical disability [Unknown]
  - Emotional distress [Unknown]
  - Thrombosis [Unknown]
  - Pulmonary embolism [Unknown]
  - Injury [Unknown]
  - Economic problem [Unknown]
  - Pain [Unknown]
  - Deep vein thrombosis [Unknown]
  - Dyspnoea [Recovered/Resolved]
  - Thrombosis [Recovered/Resolved]
  - Incorrect dose administered [Recovered/Resolved]
  - Drug dose omission [Recovered/Resolved]
  - Blood testosterone increased [Not Recovered/Not Resolved]
